FAERS Safety Report 5061291-X (Version None)
Quarter: 2006Q3

REPORT INFORMATION
  Report Type: 
  Country: None (occurrence: None)
  Receive Date: 20060721
  Receipt Date: 20060721
  Transmission Date: 20061208
  Serious: Yes (Hospitalization)
  Sender: FDA-Public Use
  Company Number: None

PATIENT
  Age: 65 Year
  Sex: Female

DRUGS (1)
  1. LEVOFLOXACIN [Suspect]
     Indication: CORONARY ARTERY DISEASE
     Dosage: 750 MG X 1 IV
     Route: 042
     Dates: start: 20060329

REACTIONS (1)
  - TORSADE DE POINTES [None]
